FAERS Safety Report 6942809-6 (Version None)
Quarter: 2010Q3

REPORT INFORMATION
  Report Type: 
  Country: None (occurrence: None)
  Receive Date: 20100826
  Receipt Date: 20100818
  Transmission Date: 20110219
  Serious: Yes (Hospitalization)
  Sender: FDA-Public Use
  Company Number: US-ROCHE-716673

PATIENT
  Sex: Female

DRUGS (5)
  1. XELODA [Suspect]
     Indication: BREAST CANCER
     Route: 065
     Dates: end: 20100616
  2. TYKERB [Suspect]
     Indication: BREAST CANCER
     Route: 048
     Dates: end: 20100716
  3. PREDNISOLONE [Concomitant]
  4. REFRESH [Concomitant]
     Route: 047
  5. TUSSIONEX [Concomitant]
     Dates: start: 20091119

REACTIONS (6)
  - LUNG DISORDER [None]
  - MALIGNANT NEOPLASM PROGRESSION [None]
  - PERICARDIAL EFFUSION [None]
  - PLEURAL EFFUSION [None]
  - PULMONARY OEDEMA [None]
  - SKIN TOXICITY [None]
